FAERS Safety Report 8106269-4 (Version None)
Quarter: 2012Q1

REPORT INFORMATION
  Report Type: 
  Country: None (occurrence: None)
  Receive Date: 20120202
  Receipt Date: 20120125
  Transmission Date: 20120608
  Serious: Yes (Other)
  Sender: FDA-Public Use
  Company Number: BE-BAYER-2012-008187

PATIENT

DRUGS (2)
  1. NEXAVAR [Suspect]
     Indication: THYROID CANCER
     Dosage: 400 MG, BID
     Dates: start: 20110921
  2. NEXAVAR [Suspect]
     Dosage: 200 MG, BID
     Dates: start: 20111008

REACTIONS (2)
  - PALMAR-PLANTAR ERYTHRODYSAESTHESIA SYNDROME [None]
  - LANGERHANS' CELL HISTIOCYTOSIS [None]
